FAERS Safety Report 10394021 (Version 1)
Quarter: 2014Q3

REPORT INFORMATION
  Report Type: Report from Study
  Country: US (occurrence: US)
  Receive Date: 20140819
  Receipt Date: 20140819
  Transmission Date: 20150326
  Serious: Yes (Hospitalization)
  Sender: FDA-Public Use
  Company Number: US-BRISTOL-MYERS SQUIBB COMPANY-21292479

PATIENT
  Age: 62 Year
  Sex: Male
  Weight: 100.68 kg

DRUGS (1)
  1. YERVOY [Suspect]
     Active Substance: IPILIMUMAB
     Indication: METASTATIC MALIGNANT MELANOMA
     Route: 042
     Dates: start: 20140701, end: 20140722

REACTIONS (2)
  - Rash pruritic [Unknown]
  - Eye swelling [Unknown]

NARRATIVE: CASE EVENT DATE: 20140806
